FAERS Safety Report 7556607-6 (Version None)
Quarter: 2011Q2

REPORT INFORMATION
  Report Type: 
  Country: None (occurrence: None)
  Receive Date: 20110610
  Receipt Date: 20110427
  Transmission Date: 20111010
  Serious: Yes (Hospitalization, Other)
  Sender: FDA-Public Use
  Company Number: 2011SP014530

PATIENT
  Sex: Male

DRUGS (11)
  1. VALPROATE SODIUM [Concomitant]
  2. LANSOPRAZOLE [Concomitant]
  3. ACETAMINOPHEN [Concomitant]
  4. TEMODAL [Suspect]
     Dosage: 150 MG/N2; 200 MG/M2;
     Dates: start: 20110328
  5. DEXAMETHASONE [Concomitant]
  6. PHENYTOIN [Concomitant]
  7. MIRTAZAPINE [Concomitant]
  8. CHLORPHENIRAMINE MALEATE [Concomitant]
  9. MIRTAZAPINE [Concomitant]
  10. ZOPITAN [Concomitant]
  11. DIAZEPAM [Concomitant]

REACTIONS (5)
  - VOMITING [None]
  - CONSTIPATION [None]
  - NAUSEA [None]
  - LOWER RESPIRATORY TRACT INFECTION [None]
  - KIDNEY INFECTION [None]
